FAERS Safety Report 6144390-0 (Version None)
Quarter: 2009Q2

REPORT INFORMATION
  Report Type: 
  Country: None (occurrence: None)
  Receive Date: 20090406
  Receipt Date: 20090327
  Transmission Date: 20091009
  Serious: Yes (Hospitalization)
  Sender: FDA-Public Use
  Company Number: AU-ASTRAZENECA-2009AP01065

PATIENT
  Age: 24238 Day
  Sex: Female

DRUGS (13)
  1. ZD6474 [Suspect]
     Indication: NON-SMALL CELL LUNG CANCER
     Route: 048
     Dates: start: 20081007, end: 20090109
  2. ZD6474 [Suspect]
     Dosage: DOSE REDUCED
     Route: 048
     Dates: start: 20090128, end: 20090218
  3. NEXIUM [Suspect]
     Indication: GASTROOESOPHAGEAL REFLUX DISEASE
  4. NAPROSYN [Suspect]
     Indication: ARTHRALGIA
  5. CLEXANE [Concomitant]
     Indication: DEEP VEIN THROMBOSIS
  6. ENDONE [Concomitant]
     Indication: MUSCULOSKELETAL DISCOMFORT
     Dates: start: 20081202
  7. MAXALON [Concomitant]
     Indication: NAUSEA
     Dates: start: 20081210
  8. ACETAMINOPHEN [Concomitant]
     Indication: MUSCULOSKELETAL DISCOMFORT
  9. CELEBREX [Concomitant]
     Indication: MUSCULOSKELETAL DISCOMFORT
  10. TRAMADOL HCL [Concomitant]
     Indication: ARTHRALGIA
  11. MINOCYCLINE HCL [Concomitant]
     Indication: RASH
  12. GLUCOSAMINE [Concomitant]
     Indication: ARTHRALGIA
     Dates: start: 20081203
  13. SOMAC [Concomitant]
     Indication: GASTROOESOPHAGEAL REFLUX DISEASE
     Dates: start: 20090109

REACTIONS (1)
  - RENAL FAILURE ACUTE [None]
